FAERS Safety Report 13016937 (Version 1)
Quarter: 2016Q4

REPORT INFORMATION
  Report Type: Spontaneous
  Country: US (occurrence: US)
  Receive Date: 20161209
  Receipt Date: 20161209
  Transmission Date: 20170207
  Serious: Yes (Death)
  Sender: FDA-Public Use
  Company Number: None

PATIENT
  Age: 58 Year
  Sex: Male
  Weight: 51 kg

DRUGS (1)
  1. PACLITAXEL. [Suspect]
     Active Substance: PACLITAXEL
     Indication: NON-SMALL CELL LUNG CANCER
     Dosage: INTRAVENOUS (NOT OTHERWISE SPECIFIED)? OTHER FREQUENCY:WEEKLY;?
     Route: 042
     Dates: start: 20161208, end: 20161208

REACTIONS (4)
  - Infusion related reaction [None]
  - Pulseless electrical activity [None]
  - Drug hypersensitivity [None]
  - Unresponsive to stimuli [None]

NARRATIVE: CASE EVENT DATE: 20161208
